FAERS Safety Report 21416802 (Version 2)
Quarter: 2023Q1

REPORT INFORMATION
  Report Type: Spontaneous
  Country: US (occurrence: US)
  Receive Date: 20221006
  Receipt Date: 20230323
  Transmission Date: 20230418
  Serious: No
  Sender: FDA-Public Use
  Company Number: US-ALLERGAN-2228906US

PATIENT
  Sex: Male
  Weight: 135.17 kg

DRUGS (17)
  1. VRAYLAR [Suspect]
     Active Substance: CARIPRAZINE
     Indication: Bipolar disorder
     Dosage: 3 DF, QD
     Route: 048
     Dates: start: 2019
  2. CEREBROLYSIN [Concomitant]
     Active Substance: CEREBROLYSIN
     Indication: Product used for unknown indication
     Dosage: UNK
  3. METOPROLOL [Concomitant]
     Active Substance: METOPROLOL
     Indication: Hypertension
     Dosage: UNK
  4. METOPROLOL [Concomitant]
     Active Substance: METOPROLOL
     Indication: Migraine
  5. VITAMINS [Concomitant]
     Active Substance: VITAMINS
     Indication: Product used for unknown indication
  6. supplements (Cortisol) [Concomitant]
     Indication: Product used for unknown indication
     Dosage: UNK
  7. NIACIN [Concomitant]
     Active Substance: NIACIN
     Indication: Product used for unknown indication
     Dosage: UNK
  8. DIMETHYL SULFONE [Concomitant]
     Active Substance: DIMETHYL SULFONE
     Indication: Product used for unknown indication
     Dosage: UNK
  9. TRIAMCINOLONE [Concomitant]
     Active Substance: TRIAMCINOLONE
     Indication: Hypersensitivity
     Dosage: UNK
  10. J Crow^s Lugol^s Solution [Concomitant]
     Indication: Product used for unknown indication
     Dosage: UNK
  11. Blutbonate (Supplement) [Concomitant]
     Indication: Product used for unknown indication
     Dosage: UNK
  12. VITAMIN E [Concomitant]
     Active Substance: .ALPHA.-TOCOPHEROL
     Indication: Product used for unknown indication
     Dosage: UNK
  13. Vision Cax Forte [Concomitant]
     Indication: Product used for unknown indication
     Dosage: UNK
  14. Veeno (supplement) [Concomitant]
     Indication: Product used for unknown indication
     Dosage: UNK
  15. CALENDULA OFFICINALIS [Concomitant]
     Active Substance: HOMEOPATHICS
     Indication: Dry skin
     Dosage: UNK
  16. FIBER [Concomitant]
     Indication: Product used for unknown indication
     Dosage: UNK
  17. OLANZAPINE [Concomitant]
     Active Substance: OLANZAPINE
     Indication: Product used for unknown indication
     Dosage: UNK

REACTIONS (11)
  - Gastrointestinal disorder [Not Recovered/Not Resolved]
  - Somnolence [Not Recovered/Not Resolved]
  - Chest pain [Not Recovered/Not Resolved]
  - Pain in extremity [Not Recovered/Not Resolved]
  - Bradyphrenia [Not Recovered/Not Resolved]
  - Cerebral disorder [Not Recovered/Not Resolved]
  - Impaired work ability [Not Recovered/Not Resolved]
  - Myalgia [Not Recovered/Not Resolved]
  - Weight increased [Not Recovered/Not Resolved]
  - Diarrhoea [Not Recovered/Not Resolved]
  - Therapeutic response decreased [Unknown]
